FAERS Safety Report 8513437-6 (Version None)
Quarter: 2012Q3

REPORT INFORMATION
  Report Type: 
  Country: None (occurrence: None)
  Receive Date: 20120717
  Receipt Date: 20120709
  Transmission Date: 20120928
  Serious: No
  Sender: FDA-Public Use
  Company Number: US-BIOGENIDEC-2012BI016307

PATIENT
  Sex: Female

DRUGS (1)
  1. TYSABRI [Suspect]
     Indication: MULTIPLE SCLEROSIS
     Route: 042
     Dates: start: 20111228

REACTIONS (14)
  - LUNG DISORDER [None]
  - FEELING COLD [None]
  - WEIGHT INCREASED [None]
  - FEELING HOT [None]
  - DRUG INEFFECTIVE [None]
  - WEIGHT DECREASED [None]
  - DYSPHAGIA [None]
  - MUSCLE SPASMS [None]
  - MALAISE [None]
  - DEHYDRATION [None]
  - VISUAL IMPAIRMENT [None]
  - HYPOAESTHESIA [None]
  - ASTHENIA [None]
  - PYREXIA [None]
